FAERS Safety Report 7535436-3 (Version None)
Quarter: 2011Q2

REPORT INFORMATION
  Report Type: 
  Country: None (occurrence: None)
  Receive Date: 20110609
  Receipt Date: 20080623
  Transmission Date: 20111010
  Serious: Yes (Death, Other)
  Sender: FDA-Public Use
  Company Number: PHHY2008CA04781

PATIENT
  Sex: Female

DRUGS (8)
  1. CLOZAPINE [Suspect]
     Indication: TREMOR
  2. PRILOSEC [Concomitant]
  3. CLOZAPINE [Suspect]
     Indication: SCHIZOPHRENIA
     Dates: start: 20071108
  4. ASPIRIN [Concomitant]
  5. SYNTHROID [Concomitant]
  6. CARLSOCOL [Concomitant]
  7. EURO K [Concomitant]
  8. EFFEXOR XR [Concomitant]

REACTIONS (4)
  - DEATH [None]
  - TREMOR [None]
  - HYPERTENSION [None]
  - ANXIETY [None]
